FAERS Safety Report 9887631 (Version 1)
Quarter: 2014Q1

REPORT INFORMATION
  Report Type: Spontaneous
  Country: US (occurrence: US)
  Receive Date: 20140211
  Receipt Date: 20140211
  Transmission Date: 20141002
  Serious: Yes (Other)
  Sender: FDA-Public Use
  Company Number: US-JNJFOC-20140202792

PATIENT
  Sex: Male

DRUGS (2)
  1. INTELENCE [Suspect]
     Indication: PRODUCT USED FOR UNKNOWN INDICATION
     Route: 048
  2. SELZENTRY [Suspect]
     Indication: HIV INFECTION
     Route: 065

REACTIONS (3)
  - Lipodystrophy acquired [Unknown]
  - Blood cholesterol increased [Unknown]
  - Deformity [Unknown]
